FAERS Safety Report 26210909 (Version 1)
Quarter: 2025Q4

REPORT INFORMATION
  Report Type: Spontaneous
  Country: CA (occurrence: CA)
  Receive Date: 20251230
  Receipt Date: 20251230
  Transmission Date: 20260119
  Serious: Yes (Death, Life-Threatening, Hospitalization)
  Sender: ACCORD
  Company Number: None

PATIENT
  Age: 72 Year
  Sex: Female
  Weight: 81 kg

DRUGS (6)
  1. CARBOPLATIN [Suspect]
     Active Substance: CARBOPLATIN
     Indication: Neoplasm malignant
     Dosage: 1 EVERY 21 DAYS
     Route: 042
  2. PACLITAXEL [Suspect]
     Active Substance: PACLITAXEL
     Indication: Neoplasm malignant
     Dosage: 1 EVERY 21 DAYS
     Route: 042
  3. ACETAMINOPHEN [Concomitant]
     Active Substance: ACETAMINOPHEN
  4. FUROSEMIDE [Concomitant]
     Active Substance: FUROSEMIDE
  5. LACTULOSE [Concomitant]
     Active Substance: LACTULOSE
     Dosage: SOLUTION ORAL
  6. PROCHLORPERAZINE [Concomitant]
     Active Substance: PROCHLORPERAZINE

REACTIONS (12)
  - Atrial fibrillation [Fatal]
  - Culture positive [Fatal]
  - Enterococcus test positive [Fatal]
  - Bacterial translocation [Fatal]
  - Sepsis [Fatal]
  - Septic shock [Fatal]
  - Febrile neutropenia [Fatal]
  - Hypotension [Fatal]
  - Palliative care [Fatal]
  - Alanine aminotransferase increased [Fatal]
  - Oedema [Fatal]
  - Pneumonia klebsiella [Fatal]
